FAERS Safety Report 9641255 (Version 1)
Quarter: 2013Q4

REPORT INFORMATION
  Report Type: Spontaneous
  Country: FI (occurrence: FI)
  Receive Date: 20131023
  Receipt Date: 20131023
  Transmission Date: 20140711
  Serious: Yes (Hospitalization)
  Sender: FDA-Public Use
  Company Number: FI-UCBSA-100409

PATIENT
  Sex: Female

DRUGS (8)
  1. CIMZIA [Suspect]
     Indication: PSORIATIC ARTHROPATHY
     Dosage: NO OF DOSES RECEIVED: 2
     Dates: start: 20130202, end: 201302
  2. CIMZIA [Suspect]
     Indication: ARTHRITIS REACTIVE
     Dosage: NO OF DOSES RECEIVED: 2
     Dates: start: 20130202, end: 201302
  3. CIMZIA [Suspect]
     Indication: PSORIATIC ARTHROPATHY
     Dosage: DOSE: 400 MG
     Dates: start: 20130221, end: 20130307
  4. CIMZIA [Suspect]
     Indication: ARTHRITIS REACTIVE
     Dosage: DOSE: 400 MG
     Dates: start: 20130221, end: 20130307
  5. CARDACE [Concomitant]
     Dosage: DOSE PER INTAKE: 10 MG
  6. CARVEDILOL [Concomitant]
     Dosage: DOSE PER INTAKE: 25 MG X 2
  7. PULMICORT [Concomitant]
  8. ALVESCO [Concomitant]

REACTIONS (3)
  - Dyspnoea [Recovered/Resolved]
  - Pharyngeal oedema [Recovered/Resolved]
  - Throat irritation [Recovered/Resolved]
